FAERS Safety Report 5253406-5 (Version None)
Quarter: 2007Q1

REPORT INFORMATION
  Report Type: 
  Country: None (occurrence: None)
  Receive Date: 20070301
  Receipt Date: 20070222
  Transmission Date: 20070707
  Serious: Yes (Death, Hospitalization)
  Sender: FDA-Public Use
  Company Number: AT-ELI_LILLY_AND_COMPANY-AT200702001529

PATIENT
  Age: 60 Year
  Sex: Male

DRUGS (15)
  1. XIGRIS [Suspect]
     Indication: SEPSIS
     Dosage: 24 UNK, EVERY HOUR
     Route: 042
     Dates: start: 20070101, end: 20070101
  2. ANTITHROMBIN III [Concomitant]
     Indication: SEPSIS
     Dates: start: 20070101
  3. PENICILLIN ^NOVO^ [Concomitant]
     Indication: SEPSIS
  4. OPTINEM [Concomitant]
     Indication: SEPSIS
  5. ZYVOX [Concomitant]
     Indication: SEPSIS
  6. ANAEROBEX [Concomitant]
     Indication: SEPSIS
  7. SELEN [Concomitant]
     Indication: SEPSIS
  8. PANTOLOC                           /01263201/ [Concomitant]
     Indication: SEPSIS
  9. FRAGMIN [Concomitant]
     Indication: SEPSIS
  10. NORADRENALINE [Concomitant]
     Indication: SEPSIS
  11. KETANEST [Concomitant]
     Indication: SEPSIS
  12. DORMICUM [Concomitant]
     Indication: SEPSIS
  13. FENTANYL [Concomitant]
     Indication: SEPSIS
  14. ACTRAPID [Concomitant]
  15. IMMUNE GLOBULIN INTRAVENOUS (HUMAN) [Concomitant]
     Indication: SEPSIS

REACTIONS (1)
  - HAEMORRHAGE INTRACRANIAL [None]
